FAERS Safety Report 7225642-X (Version None)
Quarter: 2011Q1

REPORT INFORMATION
  Report Type: 
  Country: None (occurrence: None)
  Receive Date: 20110110
  Receipt Date: 20110110
  Transmission Date: 20110831
  Serious: Yes (Life-Threatening, Hospitalization, Disabling)
  Sender: FDA-Public Use
  Company Number: None

PATIENT
  Sex: Female
  Weight: 135.6255 kg

DRUGS (2)
  1. FUROSEMIDE GENERIC FOR LASIX 40 MG TABLET MYLAN 216-40 ORALLY, DAILY [Suspect]
     Indication: HYPERTENSION
     Dosage: 40 MG. TABLET DAILY
     Dates: start: 20020101, end: 20100101
  2. FUROSEMIDE GENERIC FOR LASIX 40 MG TABLET MYLAN 216-40 ORALLY, DAILY [Suspect]
     Indication: FLUID RETENTION
     Dosage: 40 MG. TABLET DAILY
     Dates: start: 20020101, end: 20100101

REACTIONS (10)
  - PYURIA [None]
  - CALCULUS URETHRAL [None]
  - PYREXIA [None]
  - CHILLS [None]
  - QUALITY OF LIFE DECREASED [None]
  - GAIT DISTURBANCE [None]
  - PAIN IN EXTREMITY [None]
  - NEPHROLITHIASIS [None]
  - APHAGIA [None]
  - WALKING AID USER [None]
